FAERS Safety Report 25518795 (Version 1)
Quarter: 2025Q3

REPORT INFORMATION
  Report Type: Spontaneous
  Country: CN (occurrence: CN)
  Receive Date: 20250704
  Receipt Date: 20250704
  Transmission Date: 20251020
  Serious: Yes (Hospitalization)
  Sender: ROCHE
  Company Number: CN-ROCHE-10000326908

PATIENT
  Age: 73 Year
  Sex: Female

DRUGS (1)
  1. ADO-TRASTUZUMAB EMTANSINE [Suspect]
     Active Substance: ADO-TRASTUZUMAB EMTANSINE
     Indication: Breast cancer
     Route: 065

REACTIONS (4)
  - Hyponatraemia [Recovering/Resolving]
  - Malaise [Unknown]
  - Asthenia [Unknown]
  - Dyschezia [Unknown]

NARRATIVE: CASE EVENT DATE: 20250512
